FAERS Safety Report 9785713 (Version 3)
Quarter: 2014Q1

REPORT INFORMATION
  Report Type: Spontaneous
  Country: US (occurrence: US)
  Receive Date: 20131227
  Receipt Date: 20140221
  Transmission Date: 20141002
  Serious: No
  Sender: FDA-Public Use
  Company Number: US-009507513-1312USA011224

PATIENT
  Age: 85 Year
  Sex: Male

DRUGS (4)
  1. MK-0000 (111) [Suspect]
  2. FORMOTEROL FUMARATE [Suspect]
     Indication: CHRONIC OBSTRUCTIVE PULMONARY DISEASE
     Dosage: 1 DF, BID
     Route: 055
     Dates: start: 2012
  3. FORMOTEROL FUMARATE [Suspect]
     Dosage: 1 DF, QD
     Route: 055
  4. FORMOTEROL FUMARATE [Suspect]
     Dosage: UNK, ONCE
     Route: 048
     Dates: start: 20131224

REACTIONS (4)
  - Incorrect route of drug administration [Unknown]
  - Inappropriate schedule of drug administration [Unknown]
  - Off label use [Unknown]
  - No adverse event [Unknown]
